FAERS Safety Report 15868947 (Version 2)
Quarter: 2019Q1

REPORT INFORMATION
  Report Type: Report from Study
  Country: ID (occurrence: ID)
  Receive Date: 20190125
  Receipt Date: 20190213
  Transmission Date: 20190417
  Serious: Yes (Hospitalization, Other)
  Sender: FDA-Public Use
  Company Number: ID-PFIZER INC-2019030459

PATIENT
  Age: 29 Year
  Sex: Female

DRUGS (12)
  1. PYRAZINAMIDE. [Suspect]
     Active Substance: PYRAZINAMIDE
     Indication: PULMONARY TUBERCULOSIS
     Dosage: 1500 MG, DAILY
     Route: 048
     Dates: start: 20190116
  2. RIFAPENTINE [Suspect]
     Active Substance: RIFAPENTINE
     Indication: PULMONARY TUBERCULOSIS
     Dosage: 1200 MG, DAILY
     Route: 048
     Dates: start: 20190116, end: 20190120
  3. CEFADROXIL. [Concomitant]
     Active Substance: CEFADROXIL
     Dosage: 1000 MG, DAILY
     Route: 048
     Dates: start: 20181228, end: 20190111
  4. CHLORPHENIRAMINE MALEATE. [Concomitant]
     Active Substance: CHLORPHENIRAMINE MALEATE
     Dosage: 12 MG, DAILY
     Route: 048
     Dates: start: 20181228, end: 20190116
  5. LEVOFLOXACIN. [Suspect]
     Active Substance: LEVOFLOXACIN
     Indication: PULMONARY TUBERCULOSIS
     Dosage: 1000 MG, DAILY
     Route: 048
     Dates: start: 20190116
  6. BETAHISTINE MESILATE [Concomitant]
     Active Substance: BETAHISTINE MESILATE
     Dosage: 24 MG, DAILY
     Route: 048
     Dates: start: 20190118, end: 20190124
  7. RIFAPENTINE [Suspect]
     Active Substance: RIFAPENTINE
     Dosage: 900 MG, DAILY
     Route: 048
     Dates: start: 20190121
  8. METOCLOPRAMIDE. [Concomitant]
     Active Substance: METOCLOPRAMIDE
     Dosage: 30 MG, DAILY
     Route: 048
     Dates: start: 20190118
  9. ISONIAZID. [Suspect]
     Active Substance: ISONIAZID
     Indication: PULMONARY TUBERCULOSIS
     Dosage: 300 MG, DAILY
     Route: 048
     Dates: start: 20190116
  10. PARACETAMOL [Concomitant]
     Active Substance: ACETAMINOPHEN
     Dosage: 1500 MG, DAILY
     Route: 048
     Dates: start: 20190118
  11. LINEZOLID. [Suspect]
     Active Substance: LINEZOLID
     Indication: PULMONARY TUBERCULOSIS
     Dosage: 600 MG, DAILY
     Route: 048
     Dates: start: 20190116
  12. DEXTROMETHORPHANE [Concomitant]
     Active Substance: DEXTROMETHORPHAN
     Dosage: 45 MG, DAILY
     Route: 048
     Dates: start: 20181228, end: 20190116

REACTIONS (4)
  - Headache [Recovering/Resolving]
  - Dehydration [Recovered/Resolved]
  - Nausea [Recovering/Resolving]
  - Vomiting [Recovering/Resolving]

NARRATIVE: CASE EVENT DATE: 20190118
